FAERS Safety Report 6606486-6 (Version None)
Quarter: 2010Q1

REPORT INFORMATION
  Report Type: 
  Country: None (occurrence: None)
  Receive Date: 20100226
  Receipt Date: 20100218
  Transmission Date: 20100710
  Serious: Yes (Hospitalization)
  Sender: FDA-Public Use
  Company Number: PHHO2009DE14109

PATIENT
  Sex: Female
  Weight: 168 kg

DRUGS (7)
  1. CERTICAN [Suspect]
     Indication: RENAL TRANSPLANT
     Dosage: UNK
     Route: 048
     Dates: start: 20091026
  2. MYFORTIC [Suspect]
     Indication: RENAL TRANSPLANT
     Dosage: UNK
     Dates: start: 20090908
  3. SIMULECT [Suspect]
     Indication: RENAL TRANSPLANT
     Dosage: UNK
     Route: 042
     Dates: start: 20090908
  4. SIMULECT [Suspect]
     Dosage: UNK
     Route: 042
     Dates: start: 20090913
  5. SIMULECT [Suspect]
     Dosage: UNK
     Route: 042
     Dates: start: 20091026
  6. SANDIMMUNE [Suspect]
     Indication: RENAL TRANSPLANT
     Dosage: UNK
     Dates: start: 20090908, end: 20091102
  7. URBASON [Concomitant]
     Indication: RENAL TRANSPLANT
     Dosage: UNK
     Dates: start: 20090908

REACTIONS (5)
  - CONCOMITANT DISEASE PROGRESSION [None]
  - DIARRHOEA [None]
  - DRUG INEFFECTIVE [None]
  - KIDNEY TRANSPLANT REJECTION [None]
  - LEUKOPENIA [None]
